FAERS Safety Report 8936298 (Version 2)
Quarter: 2013Q1

REPORT INFORMATION
  Report Type: Spontaneous
  Country: US (occurrence: US)
  Receive Date: 20121130
  Receipt Date: 20130111
  Transmission Date: 20140127
  Serious: Yes (Other)
  Sender: FDA-Public Use
  Company Number: US-PFIZER INC-2012300821

PATIENT
  Age: 42 Year
  Sex: Male

DRUGS (2)
  1. NEURONTIN [Suspect]
     Dosage: 300 MG, 2X/DAY
     Route: 048
     Dates: start: 20121113
  2. SAPHRIS [Concomitant]
     Dosage: 5 MG, 2X/DAY

REACTIONS (2)
  - Surgery [Unknown]
  - Impaired work ability [Unknown]
